FAERS Safety Report 7426370-8 (Version None)
Quarter: 2011Q2

REPORT INFORMATION
  Report Type: 
  Country: None (occurrence: None)
  Receive Date: 20110413
  Receipt Date: 20110330
  Transmission Date: 20111010
  Serious: Yes (Death)
  Sender: FDA-Public Use
  Company Number: M1101694

PATIENT
  Age: 70 Year
  Sex: Male

DRUGS (1)
  1. AMIODARONE (UNK MFR UNK STRENGTH)(AMIODARONE) [Suspect]
     Indication: PRODUCT USED FOR UNKNOWN INDICATION
     Dosage: ORAL
     Route: 048

REACTIONS (1)
  - DEPRESSION [None]
